FAERS Safety Report 7400873-4 (Version None)
Quarter: 2011Q2

REPORT INFORMATION
  Report Type: 
  Country: None (occurrence: None)
  Receive Date: 20110407
  Receipt Date: 20110331
  Transmission Date: 20111010
  Serious: Yes (Other)
  Sender: FDA-Public Use
  Company Number: CH-PFIZER INC-CH-WYE-H06901908

PATIENT
  Age: 70 Year
  Sex: Male

DRUGS (15)
  1. CORDARONE [Suspect]
     Indication: ATRIAL FIBRILLATION
     Dosage: 400 MG, 3X/DAY
     Route: 048
     Dates: start: 20081004, end: 20081019
  2. SINTROM [Interacting]
     Dosage: 1 MG, UNK
     Dates: start: 20081021
  3. ZOLOFT [Interacting]
     Indication: DEPRESSION
     Dosage: 50 MG, 1X/DAY
     Route: 048
     Dates: start: 20081010
  4. METFORMIN HYDROCHLORIDE [Concomitant]
     Dosage: 1500 MG, 1X/DAY
     Route: 048
  5. BELOC [Concomitant]
     Dosage: 100 MG, 1X/DAY
     Route: 048
     Dates: start: 20081016
  6. SINTROM [Interacting]
     Dosage: 2 MG, UNK
     Dates: start: 20081019, end: 20081019
  7. CORDARONE [Interacting]
     Indication: ATRIAL FLUTTER
     Dosage: 200 MG, 1X/DAY
     Route: 048
     Dates: start: 20081020
  8. SINTROM [Interacting]
     Indication: ATRIAL FIBRILLATION
     Dosage: 3 MG, UNK
     Route: 048
     Dates: start: 20081015, end: 20081015
  9. SINTROM [Interacting]
     Indication: ATRIAL FLUTTER
     Dosage: 2 MG, UNK
     Route: 048
     Dates: start: 20081016, end: 20081016
  10. SINTROM [Interacting]
     Dosage: 3 MG, UNK
     Dates: start: 20081017, end: 20081017
  11. AMLODIPINE [Concomitant]
     Dosage: 10 MG, 1X/DAY
     Route: 048
     Dates: start: 20081004
  12. SINTROM [Interacting]
     Dosage: 1 MG, UNK
     Dates: start: 20081018, end: 20081018
  13. ESIDRIX [Concomitant]
     Dosage: 25 MG, 1X/DAY
     Route: 048
     Dates: start: 20081017
  14. MICARDIS [Concomitant]
     Dosage: 80 MG, 1X/DAY
     Route: 048
  15. TORASEMIDE [Concomitant]
     Dosage: 5 MG, 1X/DAY
     Route: 048

REACTIONS (2)
  - DRUG INTERACTION [None]
  - INTERNATIONAL NORMALISED RATIO INCREASED [None]
